FAERS Safety Report 13429545 (Version 1)
Quarter: 2017Q2

REPORT INFORMATION
  Report Type: Spontaneous
  Country: US (occurrence: US)
  Receive Date: 20170411
  Receipt Date: 20170411
  Transmission Date: 20170830
  Serious: No
  Sender: FDA-Public Use
  Company Number: US-ELI_LILLY_AND_COMPANY-US201607011918

PATIENT

DRUGS (2)
  1. CYMBALTA [Suspect]
     Active Substance: DULOXETINE HYDROCHLORIDE
     Indication: DEPRESSION
     Dosage: UNK, UNKNOWN
     Route: 048
     Dates: start: 20050305
  2. CYMBALTA [Suspect]
     Active Substance: DULOXETINE HYDROCHLORIDE
     Indication: NECK PAIN
     Dosage: 30 MG, QD
     Route: 048
     Dates: end: 200704

REACTIONS (16)
  - Drug withdrawal syndrome [Unknown]
  - Sensory disturbance [Unknown]
  - Agitation [Unknown]
  - Insomnia [Unknown]
  - Fatigue [Unknown]
  - Dizziness [Unknown]
  - Confusional state [Unknown]
  - Affect lability [Unknown]
  - Hypomania [Unknown]
  - Paraesthesia [Unknown]
  - Lethargy [Unknown]
  - Tinnitus [Unknown]
  - Dysphoria [Unknown]
  - Anxiety [Unknown]
  - Irritability [Unknown]
  - Headache [Unknown]
